FAERS Safety Report 9399211 (Version 1)
Quarter: 2013Q3

REPORT INFORMATION
  Report Type: Spontaneous
  Country: NL (occurrence: None)
  Receive Date: 20130709
  Receipt Date: 20130709
  Transmission Date: 20140515
  Serious: Yes (Other)
  Sender: FDA-Public Use
  Company Number: AUR-APL-2013-05759

PATIENT
  Age: 4 Decade
  Sex: Female

DRUGS (1)
  1. CLARITHROMYCIN [Suspect]
     Indication: RESPIRATORY TRACT INFECTION
     Dosage: 1000 MG (500 MG, 2 IN 1 D, ) UNKNOWN

REACTIONS (5)
  - Angioedema [None]
  - Dizziness [None]
  - Palpitations [None]
  - Somnolence [None]
  - Chest pain [None]
